FAERS Safety Report 21942450 (Version 1)
Quarter: 2023Q1

REPORT INFORMATION
  Report Type: Report from Study
  Country: US (occurrence: US)
  Receive Date: 20230202
  Receipt Date: 20230202
  Transmission Date: 20230417
  Serious: No
  Sender: FDA-Public Use
  Company Number: US-EXELIXIS-CABO-22057596

PATIENT
  Age: 60 Year
  Sex: Male
  Weight: 88.435 kg

DRUGS (8)
  1. CABOMETYX [Suspect]
     Active Substance: CABOZANTINIB S-MALATE
     Indication: Hepatocellular carcinoma
     Dosage: 40 MG, QD
     Route: 048
     Dates: start: 20221012
  2. LISINOPRIL [Concomitant]
     Active Substance: LISINOPRIL
  3. SPIRONOLACTONE [Concomitant]
     Active Substance: SPIRONOLACTONE
  4. ZINC [Concomitant]
     Active Substance: ZINC
  5. MAGNESIUM [Concomitant]
     Active Substance: MAGNESIUM
  6. LACTULOSE [Concomitant]
     Active Substance: LACTULOSE
  7. FUROSEMIDE [Concomitant]
     Active Substance: FUROSEMIDE
  8. PANTOPRAZOLE SODIUM [Concomitant]
     Active Substance: PANTOPRAZOLE SODIUM

REACTIONS (5)
  - Pyrexia [Recovered/Resolved]
  - Abdominal distension [Unknown]
  - Pain [Unknown]
  - Diarrhoea [Unknown]
  - Fatigue [Unknown]

NARRATIVE: CASE EVENT DATE: 20221024
